FAERS Safety Report 15278164 (Version 4)
Quarter: 2020Q4

REPORT INFORMATION
  Report Type: Report from Study
  Country: US (occurrence: US)
  Receive Date: 20180814
  Receipt Date: 20201125
  Transmission Date: 20210113
  Serious: Yes (Other)
  Sender: FDA-Public Use
  Company Number: US-SA-2015SA027551

PATIENT

DRUGS (25)
  1. SOLU-CORTEF [Concomitant]
     Active Substance: HYDROCORTISONE SODIUM SUCCINATE
  2. DICLOFENAC [Concomitant]
     Active Substance: DICLOFENAC
  3. LOSARTAN. [Concomitant]
     Active Substance: LOSARTAN
  4. COLESTIPOL [Concomitant]
     Active Substance: COLESTIPOL
  5. FLONASE [MOMETASONE FUROATE] [Concomitant]
     Active Substance: MOMETASONE FUROATE
  6. AGALSIDASE BETA [Suspect]
     Active Substance: AGALSIDASE BETA
     Indication: FABRY^S DISEASE
     Dosage: 0.88 MG/KG (75 MG PER 85 KG), QOW
     Route: 041
     Dates: start: 200308
  7. NORMAL SALINE [Concomitant]
     Active Substance: SODIUM CHLORIDE
  8. TEGRETOL [Concomitant]
     Active Substance: CARBAMAZEPINE
  9. HEPARIN [Concomitant]
     Active Substance: HEPARIN SODIUM
  10. EPINEPHRINE. [Concomitant]
     Active Substance: EPINEPHRINE
  11. ALPRAZOLAM. [Concomitant]
     Active Substance: ALPRAZOLAM
  12. AGALSIDASE BETA [Suspect]
     Active Substance: AGALSIDASE BETA
     Indication: LIPIDOSIS
     Dosage: 1 MG/KG (85 MG PER 85 KG), QOW
     Route: 041
     Dates: start: 20060606
  13. CLONIDINE. [Concomitant]
     Active Substance: CLONIDINE
  14. PREDNISONE. [Concomitant]
     Active Substance: PREDNISONE
     Indication: PREMEDICATION
     Dosage: 60 MG
     Route: 048
  15. STERILE WATER [Concomitant]
     Active Substance: WATER
  16. FIORINAL [ACETYLSALICYLIC ACID;BUTALBITAL;CAFFEINE;PHENACETIN] [Concomitant]
     Active Substance: ASPIRIN\BUTALBITAL\CAFFEINE\PHENACETIN
  17. AGALSIDASE BETA [Suspect]
     Active Substance: AGALSIDASE BETA
     Dosage: 1.03 MG/KG (85MG), QOW
     Route: 041
     Dates: start: 20060606
  18. BENADRYL [Concomitant]
     Active Substance: DIPHENHYDRAMINE HYDROCHLORIDE
     Indication: PREMEDICATION
     Dosage: 50 MG
     Route: 042
  19. MOTRIN [Concomitant]
     Active Substance: IBUPROFEN
     Indication: PREMEDICATION
     Dosage: 800 MG
     Route: 048
  20. NORCO [Concomitant]
     Active Substance: ACETAMINOPHEN\HYDROCODONE BITARTRATE
     Dosage: UNK
  21. OLOPATADINE. [Concomitant]
     Active Substance: OLOPATADINE
  22. VERAPAMIL [Concomitant]
     Active Substance: VERAPAMIL HYDROCHLORIDE
     Dosage: 120 MG, BID
     Route: 048
  23. PANTOPRAZOLE [Concomitant]
     Active Substance: PANTOPRAZOLE
  24. NORTRIPTYLINE [Concomitant]
     Active Substance: NORTRIPTYLINE
  25. BUTALBITAL, ACETAMINOPHEN, AND CAFFEINE [Concomitant]
     Active Substance: ACETAMINOPHEN\BUTALBITAL\CAFFEINE

REACTIONS (9)
  - Infusion related reaction [Not Recovered/Not Resolved]
  - Chills [Recovered/Resolved]
  - Migraine [Not Recovered/Not Resolved]
  - Pain in extremity [Not Recovered/Not Resolved]
  - Anxiety [Recovered/Resolved]
  - Unevaluable event [Unknown]
  - Neuropathy peripheral [Not Recovered/Not Resolved]
  - Urinary tract infection [Unknown]
  - Abdominal pain [Not Recovered/Not Resolved]

NARRATIVE: CASE EVENT DATE: 2015
